FAERS Safety Report 6337559-3 (Version None)
Quarter: 2009Q3

REPORT INFORMATION
  Report Type: 
  Country: None (occurrence: None)
  Receive Date: 20090902
  Receipt Date: 20090819
  Transmission Date: 20100115
  Serious: Yes (Hospitalization, Disabling)
  Sender: FDA-Public Use
  Company Number: US-TEVA-207744USA

PATIENT
  Sex: Male
  Weight: 89.983 kg

DRUGS (11)
  1. PHENYLEPHRINE HYDROCHLORIDE INJECTION, USP 1% 1 ML SDV + 5 ML SDV [Suspect]
     Indication: HYPOTENSION
     Dosage: 50 MCG/MINUTE
     Route: 042
     Dates: start: 20090731, end: 20090731
  2. PHENYLEPHRINE HYDROCHLORIDE INJECTION, USP 1% 1 ML SDV + 5 ML SDV [Concomitant]
  3. CLEVIPREX [Suspect]
     Dosage: BOLUS
     Route: 042
     Dates: start: 20090731, end: 20090731
  4. NICARDIPINE HYDROCHLORIDE [Suspect]
     Indication: HYPERTENSION
     Dosage: SINGLE
     Route: 042
     Dates: start: 20090731, end: 20090731
  5. EPINEPHRINE [Suspect]
     Indication: HYPOTENSION
     Dosage: 2 MG/MIN
     Route: 042
     Dates: start: 20090731, end: 20090731
  6. FENTANYL [Suspect]
     Indication: ANAESTHESIA
     Dosage: BOLUS
     Route: 040
     Dates: start: 20090731, end: 20090731
  7. MIDAZOLAM HCL [Suspect]
     Indication: ANAESTHESIA
     Dosage: BOLUS
     Route: 040
     Dates: start: 20090731, end: 20090731
  8. HYDROMORPHONE HCL [Suspect]
     Indication: ANALGESIA
     Dosage: BOLUS, LOCKOUT 10 MIN
     Route: 042
     Dates: start: 20090801, end: 20090801
  9. INSULIN [Concomitant]
     Dates: start: 20090731, end: 20090801
  10. CALCIUM CHLORIDE DIHYDRATE [Concomitant]
     Dates: start: 20090731, end: 20090731
  11. SODIUM BICARBONATE IN PLASTIC CONTAINER [Concomitant]
     Dates: start: 20090731, end: 20090731

REACTIONS (7)
  - APHASIA [None]
  - CONFUSIONAL STATE [None]
  - DELIRIUM [None]
  - ENCEPHALOPATHY [None]
  - MENTAL STATUS CHANGES [None]
  - POST PROCEDURAL COMPLICATION [None]
  - UNRESPONSIVE TO STIMULI [None]
